FAERS Safety Report 19199398 (Version 1)
Quarter: 2021Q2

REPORT INFORMATION
  Report Type: Spontaneous
  Country: US (occurrence: US)
  Receive Date: 20210429
  Receipt Date: 20210429
  Transmission Date: 20210717
  Serious: No
  Sender: FDA-Public Use
  Company Number: None

PATIENT
  Age: 38 Year
  Sex: Female
  Weight: 114.3 kg

DRUGS (18)
  1. ESCITALOPRAM [Suspect]
     Active Substance: ESCITALOPRAM OXALATE
     Indication: ANXIETY
     Dosage: ?          QUANTITY:30 TABLET(S);?
     Route: 048
     Dates: start: 20210428, end: 20210429
  2. MIRENA [Concomitant]
     Active Substance: LEVONORGESTREL
  3. GLUCOCIL NATURAL [Concomitant]
  4. CEYLON CINNAMON [Concomitant]
  5. GARLIC. [Concomitant]
     Active Substance: GARLIC
  6. GINGER ROOT [Concomitant]
     Active Substance: GINGER
  7. METFORMIN ER [Concomitant]
     Active Substance: METFORMIN HYDROCHLORIDE
  8. TUMERIC CURCUMIN [Concomitant]
  9. ESCITALOPRAM [Suspect]
     Active Substance: ESCITALOPRAM OXALATE
     Indication: DEPRESSION
     Dosage: ?          QUANTITY:30 TABLET(S);?
     Route: 048
     Dates: start: 20210428, end: 20210429
  10. CHECK GLUCOSE/SUGAR [Concomitant]
  11. LORAZEPAM. [Concomitant]
     Active Substance: LORAZEPAM
  12. RX?GLIPIZIDE [Concomitant]
  13. BUSPIRONE [Concomitant]
     Active Substance: BUSPIRONE HYDROCHLORIDE
  14. BERBERINE PLUS [Concomitant]
  15. VITAMIN D3 [Concomitant]
     Active Substance: CHOLECALCIFEROL
  16. EQUATE (GENERIC ALLEGRA) [Concomitant]
  17. YEAST GUARD (HOMEOPATHIC) [Concomitant]
  18. RED YEAST RICE [Concomitant]
     Active Substance: DIETARY SUPPLEMENT

REACTIONS (9)
  - Nervousness [None]
  - Euphoric mood [None]
  - Fear [None]
  - Anxiety [None]
  - Discomfort [None]
  - Pain [None]
  - Sleep disorder [None]
  - Hyperhidrosis [None]
  - Eye disorder [None]

NARRATIVE: CASE EVENT DATE: 20210428
